FAERS Safety Report 13068887 (Version 1)
Quarter: 2016Q4

REPORT INFORMATION
  Report Type: Report from Study
  Country: US (occurrence: US)
  Receive Date: 20161228
  Receipt Date: 20161228
  Transmission Date: 20170207
  Serious: Yes (Hospitalization)
  Sender: FDA-Public Use
  Company Number: US-ACTELION-A-US2016-142232

PATIENT
  Age: 47 Year
  Sex: Female

DRUGS (4)
  1. OPSUMIT [Suspect]
     Active Substance: MACITENTAN
     Indication: PULMONARY HYPERTENSION
     Dosage: 10 MG, QD
     Route: 048
     Dates: start: 20160526
  2. OPSUMIT [Suspect]
     Active Substance: MACITENTAN
     Dosage: 10 MG, QD
     Route: 048
     Dates: start: 20140425
  3. ADCIRCA [Concomitant]
     Active Substance: TADALAFIL
  4. TYVASO [Concomitant]
     Active Substance: TREPROSTINIL

REACTIONS (24)
  - Pain in extremity [Unknown]
  - Frontal sinus operation [Unknown]
  - Pulmonary congestion [Unknown]
  - Productive cough [Unknown]
  - Pleural effusion [Unknown]
  - Ear disorder [Unknown]
  - Epistaxis [Unknown]
  - Abdominal tenderness [Unknown]
  - Musculoskeletal chest pain [Unknown]
  - Back pain [Unknown]
  - Arthralgia [Unknown]
  - Feeling hot [Unknown]
  - Pyrexia [Unknown]
  - Diarrhoea [Unknown]
  - Respiratory tract infection [Unknown]
  - Malaise [Unknown]
  - Fluid retention [Unknown]
  - Sinus congestion [Unknown]
  - Dizziness [Not Recovered/Not Resolved]
  - Fatigue [Unknown]
  - Pleurisy [Unknown]
  - Musculoskeletal pain [Unknown]
  - Dyspnoea [Unknown]
  - Headache [Unknown]

NARRATIVE: CASE EVENT DATE: 201607
